FAERS Safety Report 8406590-6 (Version None)
Quarter: 2012Q2

REPORT INFORMATION
  Report Type: 
  Country: None (occurrence: None)
  Receive Date: 20120529
  Receipt Date: 20070724
  Transmission Date: 20120825
  Serious: Yes (Hospitalization)
  Sender: FDA-Public Use
  Company Number: 02100-JPN-07-0288

PATIENT
  Age: 68 Year
  Sex: Female

DRUGS (9)
  1. PLETAL [Suspect]
     Indication: CEREBRAL INFARCTION
     Dosage: 100 MG, BID, ORAL
     Route: 048
     Dates: start: 20070131, end: 20070525
  2. DEPAKENE [Concomitant]
  3. ENALAPRIL MALEATE [Concomitant]
  4. MINIPRESS [Concomitant]
  5. GLUCOBAY [Concomitant]
  6. CORINAEL L (NIFEDIPINE) [Concomitant]
  7. MAGNESIUM OXIDE [Concomitant]
  8. NORVASC [Concomitant]
  9. JUVELA NICOTINATE (TOCOPHERYL NICOTINATE) [Concomitant]

REACTIONS (6)
  - HAEMORRHAGE SUBCUTANEOUS [None]
  - SUBCUTANEOUS HAEMATOMA [None]
  - VOMITING [None]
  - BLOOD PRESSURE DECREASED [None]
  - DEHYDRATION [None]
  - PYREXIA [None]
